FAERS Safety Report 17250321 (Version 1)
Quarter: 2020Q1

REPORT INFORMATION
  Report Type: Spontaneous
  Country: US (occurrence: US)
  Receive Date: 20200109
  Receipt Date: 20200109
  Transmission Date: 20200409
  Serious: No
  Sender: FDA-Public Use
  Company Number: US-ALLERGAN-1920715US

PATIENT
  Age: 17 Year
  Sex: Female

DRUGS (4)
  1. TRETINOIN. [Concomitant]
     Active Substance: TRETINOIN
     Indication: ACNE
  2. ACZONE [Suspect]
     Active Substance: DAPSONE
     Indication: ACNE
     Dosage: 1 DF, QD
     Route: 061
     Dates: start: 201905, end: 201905
  3. MOISTURIZER LOTION [Concomitant]
     Indication: ACNE
     Dosage: UNK
     Route: 061
  4. CLINDAMYCIN TOPICAL FOAM [Concomitant]
     Indication: ACNE
     Dosage: UNK
     Route: 061

REACTIONS (1)
  - Rash erythematous [Recovered/Resolved]

NARRATIVE: CASE EVENT DATE: 201905
